FAERS Safety Report 5469374-7 (Version None)
Quarter: 2007Q3

REPORT INFORMATION
  Report Type: 
  Country: None (occurrence: None)
  Receive Date: 20070927
  Receipt Date: 20070919
  Transmission Date: 20080115
  Serious: Yes (Hospitalization)
  Sender: FDA-Public Use
  Company Number: FR-ELI_LILLY_AND_COMPANY-FR200705007263

PATIENT
  Age: 74 Year
  Sex: Female

DRUGS (1)
  1. FORTEO [Suspect]
     Indication: OSTEOPOROSIS
     Dosage: 20 UG, DAILY (1/D)
     Route: 058
     Dates: start: 20060529

REACTIONS (6)
  - ECCHYMOSIS [None]
  - FALL [None]
  - FOOT FRACTURE [None]
  - MALAISE [None]
  - OEDEMA PERIPHERAL [None]
  - UPPER LIMB FRACTURE [None]
